FAERS Safety Report 20109498 (Version 1)
Quarter: 2021Q4

REPORT INFORMATION
  Report Type: Other
  Country: CA (occurrence: CA)
  Receive Date: 20211124
  Receipt Date: 20211124
  Transmission Date: 20220303
  Serious: Yes (Other)
  Sender: FDA-Public Use
  Company Number: CA-APOTEX-2021AP045646

PATIENT
  Age: 65 Year
  Sex: Female

DRUGS (3)
  1. CEFUROXIME [Suspect]
     Active Substance: CEFUROXIME
     Indication: Sinusitis
     Dosage: 500 MILLIGRAM, BID
     Route: 065
  2. CEFUROXIME [Suspect]
     Active Substance: CEFUROXIME
     Indication: Lower respiratory tract infection
     Dosage: UNK
     Route: 065
  3. MEPOLIZUMAB [Suspect]
     Active Substance: MEPOLIZUMAB
     Indication: Asthma
     Dosage: 100 MILLIGRAM
     Route: 058

REACTIONS (3)
  - Lower respiratory tract infection [Unknown]
  - Condition aggravated [Unknown]
  - Sinusitis [Unknown]
